FAERS Safety Report 8276731-2 (Version None)
Quarter: 2012Q2

REPORT INFORMATION
  Report Type: 
  Country: None (occurrence: None)
  Receive Date: 20120412
  Receipt Date: 20120410
  Transmission Date: 20120825
  Serious: Yes (Death)
  Sender: FDA-Public Use
  Company Number: US-INCYTE CORPORATION-2012IN000549

PATIENT
  Sex: Female

DRUGS (3)
  1. ATENOLOL [Concomitant]
  2. JAKAFI [Suspect]
     Dosage: 15 MG, QD
     Route: 048
  3. IRON [Concomitant]
     Indication: SUPPLEMENTATION THERAPY

REACTIONS (1)
  - DEATH [None]
